FAERS Safety Report 6531476-1 (Version None)
Quarter: 2010Q1

REPORT INFORMATION
  Report Type: 
  Country: None (occurrence: None)
  Receive Date: 20100108
  Receipt Date: 20091123
  Transmission Date: 20100710
  Serious: No
  Sender: FDA-Public Use
  Company Number: US-BAYER-200914794BCC

PATIENT
  Age: 22 Year
  Sex: Female
  Weight: 54 kg

DRUGS (1)
  1. ALEVE (CAPLET) [Suspect]
     Indication: BACK PAIN
     Dosage: TOTAL DAILY DOSE: 440 MG  UNIT DOSE: 220 MG
     Route: 048
     Dates: start: 20090920

REACTIONS (7)
  - BLISTER [None]
  - CHEILITIS [None]
  - ERYTHEMA [None]
  - GLOSSITIS [None]
  - LIP SWELLING [None]
  - NASAL MUCOSAL DISORDER [None]
  - STOMATITIS [None]
